FAERS Safety Report 5873852-6 (Version None)
Quarter: 2008Q3

REPORT INFORMATION
  Report Type: 
  Country: None (occurrence: None)
  Receive Date: 20080908
  Receipt Date: 20080825
  Transmission Date: 20090109
  Serious: Yes (Hospitalization)
  Sender: FDA-Public Use
  Company Number: US-ELI_LILLY_AND_COMPANY-US200808005058

PATIENT
  Sex: Male

DRUGS (10)
  1. BYETTA [Suspect]
     Indication: TYPE 2 DIABETES MELLITUS
     Dosage: 5 UG, 2/D
     Route: 058
     Dates: start: 20080501, end: 20080601
  2. BYETTA [Suspect]
     Dosage: 10 UG, 2/D
     Route: 058
     Dates: start: 20080601
  3. GLYBURIDE [Concomitant]
     Indication: TYPE 2 DIABETES MELLITUS
     Dosage: 10 MG, 2/D
     Route: 048
     Dates: end: 20080101
  4. GLYBURIDE [Concomitant]
     Dosage: 5 MG, 2/D
     Route: 048
     Dates: start: 20080101
  5. METFORMIN HCL [Concomitant]
     Dosage: 2000 MG, EACH EVENING
     Route: 048
  6. ASPIRIN [Concomitant]
     Route: 048
  7. AGGRENOX [Concomitant]
     Route: 048
  8. HYZAAR [Concomitant]
     Route: 048
  9. LABETALOL HCL [Concomitant]
     Route: 048
  10. ZOCOR [Concomitant]
     Route: 048

REACTIONS (3)
  - ABDOMINAL PAIN UPPER [None]
  - FATIGUE [None]
  - HERNIA [None]
